FAERS Safety Report 18228470 (Version 1)
Quarter: 2020Q3

REPORT INFORMATION
  Report Type: Spontaneous
  Country: US (occurrence: US)
  Receive Date: 20200903
  Receipt Date: 20200903
  Transmission Date: 20201103
  Serious: Yes (Other)
  Sender: FDA-Public Use
  Company Number: US-FRESENIUS KABI-FK202009018

PATIENT
  Age: 80 Year
  Sex: Female

DRUGS (3)
  1. FLUOROURACIL (MANUFACTURER UNKNOWN) [Suspect]
     Active Substance: FLUOROURACIL
     Indication: SQUAMOUS CELL CARCINOMA
     Route: 065
  2. FLUOROURACIL (MANUFACTURER UNKNOWN) [Suspect]
     Active Substance: FLUOROURACIL
     Dosage: THERE IS A 6?DAY DELAY IN ADMINISTRATION OF HER DAY 16 TO 20 5?FU AND A 20 PERCENT DOSE REDUCTION TO
     Route: 065
  3. MITOMYCIN. [Suspect]
     Active Substance: MITOMYCIN
     Indication: SQUAMOUS CELL CARCINOMA
     Route: 065

REACTIONS (4)
  - Mucosal inflammation [Unknown]
  - Fatigue [Recovered/Resolved]
  - Diarrhoea [Recovered/Resolved]
  - Enteritis [Unknown]
